FAERS Safety Report 16202762 (Version 1)
Quarter: 2019Q2

REPORT INFORMATION
  Report Type: Spontaneous
  Country: US (occurrence: US)
  Receive Date: 20190416
  Receipt Date: 20190416
  Transmission Date: 20190711
  Serious: Yes (Death, Hospitalization)
  Sender: FDA-Public Use
  Company Number: US-MYLANLABS-2019M1032610

PATIENT
  Age: 34 Year
  Sex: Male

DRUGS (1)
  1. KETOROLAC [Suspect]
     Active Substance: KETOROLAC\KETOROLAC TROMETHAMINE
     Indication: ASTHMA
     Route: 042

REACTIONS (3)
  - Contraindicated product administered [Fatal]
  - Bronchospasm [Fatal]
  - Labelled drug-disease interaction medication error [Fatal]
